FAERS Safety Report 22234196 (Version 1)
Quarter: 2023Q2

REPORT INFORMATION
  Report Type: Spontaneous
  Country: US (occurrence: None)
  Receive Date: 20230420
  Receipt Date: 20230420
  Transmission Date: 20230722
  Serious: No
  Sender: FDA-Public Use
  Company Number: US-ROCHE-3168116

PATIENT
  Sex: Male

DRUGS (1)
  1. ESBRIET [Suspect]
     Active Substance: PIRFENIDONE
     Indication: Interstitial lung disease
     Dosage: THREE TIMES DAILY
     Route: 048
     Dates: start: 20220603

REACTIONS (4)
  - Abdominal pain upper [Unknown]
  - Flushing [Unknown]
  - Vertigo [Unknown]
  - Dizziness [Unknown]
